FAERS Safety Report 20336364 (Version 8)
Quarter: 2025Q1

REPORT INFORMATION
  Report Type: Spontaneous
  Country: US (occurrence: US)
  Receive Date: 20220114
  Receipt Date: 20250102
  Transmission Date: 20250409
  Serious: Yes (Other)
  Sender: PFIZER
  Company Number: US-PFIZER INC-2021599825

PATIENT
  Age: 68 Year
  Sex: Male

DRUGS (2)
  1. XELJANZ XR [Suspect]
     Active Substance: TOFACITINIB CITRATE
     Dosage: 11 MG, DAILY
     Route: 048
  2. XELJANZ XR [Suspect]
     Active Substance: TOFACITINIB CITRATE

REACTIONS (4)
  - Cerebrovascular accident [Unknown]
  - Chronic kidney disease [Not Recovered/Not Resolved]
  - Seasonal allergy [Unknown]
  - Feeling abnormal [Unknown]
